FAERS Safety Report 10265110 (Version 1)
Quarter: 2014Q2

REPORT INFORMATION
  Report Type: Report from Study
  Country: AU (occurrence: AU)
  Receive Date: 20140627
  Receipt Date: 20140627
  Transmission Date: 20141212
  Serious: Yes (Death, Other)
  Sender: FDA-Public Use
  Company Number: AU-SA-2014SA081387

PATIENT
  Age: 60 Year
  Sex: Male

DRUGS (1)
  1. RENAGEL [Suspect]
     Indication: PRODUCT USED FOR UNKNOWN INDICATION
     Route: 065
     Dates: end: 2014

REACTIONS (4)
  - Death [Fatal]
  - Diabetes mellitus [Unknown]
  - Pneumonia [Unknown]
  - Cardiac failure [Unknown]
